FAERS Safety Report 5150343-1 (Version None)
Quarter: 2006Q4

REPORT INFORMATION
  Report Type: 
  Country: None (occurrence: None)
  Receive Date: 20061108
  Receipt Date: 20061026
  Transmission Date: 20070319
  Serious: Yes (Death, Hospitalization)
  Sender: FDA-Public Use
  Company Number: 2006113201

PATIENT
  Age: 70 Year
  Sex: Male
  Weight: 68 kg

DRUGS (4)
  1. SUTENT [Suspect]
     Indication: RENAL CANCER METASTATIC
     Dosage: 50 MG (50 MG, 1 IN 1 D); ORAL
     Route: 048
     Dates: start: 20060710, end: 20060916
  2. RATACAND (CANDESARTAN CILEXETIL) [Concomitant]
  3. ATORVASTATIN CALCIUM [Concomitant]
  4. NIFEDIPINE [Concomitant]

REACTIONS (24)
  - ALBUMINURIA [None]
  - ANAEMIA [None]
  - BLOOD CULTURE POSITIVE [None]
  - COAGULATION TEST ABNORMAL [None]
  - DEHYDRATION [None]
  - DIARRHOEA [None]
  - ESCHERICHIA INFECTION [None]
  - FEBRILE NEUTROPENIA [None]
  - GALLBLADDER DISORDER [None]
  - HAEMOGLOBINURIA [None]
  - HEPATIC FAILURE [None]
  - HYPERAMMONAEMIA [None]
  - HYPERAMYLASAEMIA [None]
  - HYPERBILIRUBINAEMIA [None]
  - HYPOKALAEMIA [None]
  - MOUTH HAEMORRHAGE [None]
  - ORAL CANDIDIASIS [None]
  - PANCYTOPENIA [None]
  - PYREXIA [None]
  - RENAL FAILURE [None]
  - SEPTIC SHOCK [None]
  - SWELLING [None]
  - TRANSAMINASES INCREASED [None]
  - VOMITING [None]
